FAERS Safety Report 5445305-0 (Version None)
Quarter: 2007Q3

REPORT INFORMATION
  Report Type: 
  Country: None (occurrence: None)
  Receive Date: 20070906
  Receipt Date: 20070419
  Transmission Date: 20080115
  Serious: No
  Sender: FDA-Public Use
  Company Number: A0647987A

PATIENT
  Sex: Female

DRUGS (4)
  1. REQUIP [Suspect]
     Indication: PARKINSON'S DISEASE
     Dosage: 7MG THREE TIMES PER DAY
     Route: 048
     Dates: start: 20040101
  2. CARBIDOPA AND LEVODOPA [Suspect]
     Indication: PARKINSON'S DISEASE
     Dosage: 25MG THREE TIMES PER DAY
     Route: 048
     Dates: start: 20061001
  3. LEVOTHYROXINE SODIUM [Concomitant]
  4. IMIPRAMINE [Concomitant]

REACTIONS (2)
  - NAUSEA [None]
  - SOMNOLENCE [None]
